FAERS Safety Report 6046317-9 (Version None)
Quarter: 2009Q1

REPORT INFORMATION
  Report Type: 
  Country: None (occurrence: None)
  Receive Date: 20090121
  Receipt Date: 20090121
  Transmission Date: 20090719
  Serious: Yes (Other)
  Sender: FDA-Public Use
  Company Number: None

PATIENT
  Age: 63 Year
  Sex: Male
  Weight: 90.7194 kg

DRUGS (1)
  1. PROTONIX [Suspect]
     Indication: GASTRITIS EROSIVE
     Dosage: 1 40MG TWICE DAILY ENDOTRACHEAL
     Route: 007
     Dates: start: 20090104

REACTIONS (3)
  - OEDEMA PERIPHERAL [None]
  - PITTING OEDEMA [None]
  - SOFT TISSUE DISORDER [None]
